FAERS Safety Report 8100144 (Version 2)
Quarter: 2014Q2

REPORT INFORMATION
  Report Type: Spontaneous
  Country: US (occurrence: US)
  Receive Date: 20110822
  Receipt Date: 20140512
  Transmission Date: 20141212
  Serious: Yes (Other)
  Sender: FDA-Public Use
  Company Number: US-GLAXOSMITHKLINE-A0773592A

PATIENT
  Age: 17 Year
  Sex: Female

DRUGS (6)
  1. LAMOTRIGINE [Suspect]
     Route: 048
     Dates: start: 200811
  2. LAMICTAL [Suspect]
     Indication: CONVULSION
     Dosage: 150MG TWICE PER DAY
     Route: 048
     Dates: start: 200901
  3. LAMICTAL [Suspect]
     Dosage: 150MG UNKNOWN
     Route: 065
  4. SINGULAR [Concomitant]
  5. ZYRTEC [Concomitant]
  6. BACTRIM [Concomitant]

REACTIONS (3)
  - Convulsion [Unknown]
  - Fall [Unknown]
  - Tremor [Unknown]
